FAERS Safety Report 4486910-8 (Version None)
Quarter: 2004Q3

REPORT INFORMATION
  Report Type: 
  Country: None (occurrence: None)
  Receive Date: 20040921
  Receipt Date: 20031008
  Transmission Date: 20050211
  Serious: Yes (Hospitalization)
  Sender: FDA-Public Use
  Company Number: 163-20785-03100201

PATIENT
  Age: 87 Year
  Sex: Female
  Weight: 52.6173 kg

DRUGS (12)
  1. THALOMID [Suspect]
     Indication: METASTASES TO BONE
     Dosage: 200 MG, DAILY, ORAL
     Route: 048
     Dates: start: 20030411, end: 20031006
  2. THALOMID [Suspect]
     Indication: MULTIPLE MYELOMA
     Dosage: 200 MG, DAILY, ORAL
     Route: 048
     Dates: start: 20030411, end: 20031006
  3. DEXAMETHASONE [Suspect]
     Indication: METASTASES TO BONE
     Dates: end: 20031006
  4. DEXAMETHASONE [Suspect]
     Indication: MULTIPLE MYELOMA
     Dates: end: 20031006
  5. COUMADIN [Concomitant]
  6. BISPHOSPHONATE (BISPHOSPHONATE) [Concomitant]
  7. PLAVIX [Concomitant]
  8. ASPIRIN [Concomitant]
  9. ACIPHEX [Concomitant]
  10. PINDOLOL [Concomitant]
  11. CLONIDINE [Concomitant]
  12. ATIVAN [Concomitant]

REACTIONS (11)
  - APHASIA [None]
  - CONFUSIONAL STATE [None]
  - DYSARTHRIA [None]
  - DYSPNOEA [None]
  - FATIGUE [None]
  - HAEMATOCRIT DECREASED [None]
  - HEADACHE [None]
  - HEMIPARESIS [None]
  - NORMOCHROMIC NORMOCYTIC ANAEMIA [None]
  - TRANSIENT ISCHAEMIC ATTACK [None]
  - WANDERING PACEMAKER [None]
